FAERS Safety Report 4340503-1 (Version None)
Quarter: 2004Q2

REPORT INFORMATION
  Report Type: 
  Country: None (occurrence: None)
  Receive Date: 20040414
  Receipt Date: 20040406
  Transmission Date: 20050107
  Serious: Yes (Death)
  Sender: FDA-Public Use
  Company Number: STA-AE-04-MTX-144

PATIENT
  Age: 68 Year
  Sex: Female

DRUGS (6)
  1. RHEUMATREX [Suspect]
     Indication: RHEUMATOID ARTHRITIS
     Dosage: 6 MG 1X PER 1 WK, ORAL
     Route: 048
     Dates: start: 20010501, end: 20040215
  2. TRYTHMEN (TRICHLORMETHIAZIDE) [Concomitant]
  3. SPIRONOLACTONE [Concomitant]
  4. ISOSORBIDE DINITRATE [Concomitant]
  5. LASIX [Concomitant]
  6. PREDNISOLONE [Concomitant]

REACTIONS (5)
  - ANURIA [None]
  - CARDIO-RESPIRATORY ARREST [None]
  - MULTI-ORGAN FAILURE [None]
  - PANCYTOPENIA [None]
  - PNEUMONIA [None]
